FAERS Safety Report 16170302 (Version 1)
Quarter: 2019Q2

REPORT INFORMATION
  Report Type: Spontaneous
  Country: US (occurrence: US)
  Receive Date: 20190408
  Receipt Date: 20190408
  Transmission Date: 20190711
  Serious: No
  Sender: FDA-Public Use
  Company Number: US-TEVA-2019-US-1036753

PATIENT
  Sex: Female

DRUGS (1)
  1. AJOVY [Suspect]
     Active Substance: FREMANEZUMAB-VFRM
     Route: 065

REACTIONS (5)
  - Paraesthesia oral [Recovering/Resolving]
  - Formication [Recovering/Resolving]
  - Visual impairment [Recovering/Resolving]
  - Chest discomfort [Recovering/Resolving]
  - Lung disorder [Recovering/Resolving]
